FAERS Safety Report 14699835 (Version 2)
Quarter: 2018Q2

REPORT INFORMATION
  Report Type: Report from Study
  Country: IT (occurrence: IT)
  Receive Date: 20180330
  Receipt Date: 20180415
  Transmission Date: 20180711
  Serious: Yes (Other)
  Sender: FDA-Public Use
  Company Number: PHHY2018IT052512

PATIENT
  Age: 42 Year
  Sex: Female

DRUGS (2)
  1. GILENYA [Suspect]
     Active Substance: FINGOLIMOD HYDROCHLORIDE
     Indication: PRODUCT USED FOR UNKNOWN INDICATION
     Dosage: 0.5 OT, UNK
     Route: 065
     Dates: start: 200911, end: 2015
  2. GILENYA [Suspect]
     Active Substance: FINGOLIMOD HYDROCHLORIDE
     Dosage: UNK
     Route: 065
     Dates: start: 2015

REACTIONS (5)
  - Weight decreased [Unknown]
  - Central nervous system lesion [Unknown]
  - Paraesthesia [Unknown]
  - Optic neuritis [Unknown]
  - Malabsorption [Unknown]

NARRATIVE: CASE EVENT DATE: 2011
